FAERS Safety Report 5872838-5 (Version None)
Quarter: 2008Q3

REPORT INFORMATION
  Report Type: 
  Country: None (occurrence: None)
  Receive Date: 20080905
  Receipt Date: 20080822
  Transmission Date: 20090109
  Serious: Yes (Other)
  Sender: FDA-Public Use
  Company Number: JP-GENENTECH-265128

PATIENT
  Age: 67 Year
  Sex: Female

DRUGS (5)
  1. BEVACIZUMAB [Suspect]
     Indication: COLON CANCER RECURRENT
     Dosage: 5 MG/KG, QD
     Route: 041
     Dates: start: 20071010
  2. FLUOROURACIL [Concomitant]
     Indication: COLON CANCER RECURRENT
     Dosage: UNK
     Dates: start: 20071010
  3. OXALIPLATIN [Concomitant]
     Indication: COLON CANCER RECURRENT
     Dosage: UNK
     Dates: start: 20071010
  4. LEUCOVORIN CALCIUM [Concomitant]
     Indication: COLON CANCER RECURRENT
     Dosage: UNK
     Dates: start: 20071010
  5. FAMOTIDINE [Concomitant]
     Indication: DRUG USE FOR UNKNOWN INDICATION
     Dosage: UNK
     Dates: start: 20071010

REACTIONS (1)
  - HYPOAESTHESIA [None]
